FAERS Safety Report 14683004 (Version 1)
Quarter: 2018Q1

REPORT INFORMATION
  Report Type: Spontaneous
  Country: CA (occurrence: CA)
  Receive Date: 20180327
  Receipt Date: 20180327
  Transmission Date: 20180509
  Serious: Yes (Other)
  Sender: FDA-Public Use
  Company Number: CA-ROCHE-2091676

PATIENT
  Age: 70 Year
  Sex: Female

DRUGS (5)
  1. IBRANCE [Concomitant]
     Active Substance: PALBOCICLIB
     Dosage: DAILY FOR 21 DAYS AND 7 DAYS OFF
     Route: 048
  2. CAPECITABINE. [Suspect]
     Active Substance: CAPECITABINE
     Indication: BREAST CANCER
     Route: 048
     Dates: start: 201612
  3. EVEROLIMUS. [Concomitant]
     Active Substance: EVEROLIMUS
     Indication: BREAST CANCER
     Route: 065
     Dates: start: 201603
  4. EXEMESTANE. [Concomitant]
     Active Substance: EXEMESTANE
     Route: 065
     Dates: start: 201611
  5. FULVESTRANT. [Concomitant]
     Active Substance: FULVESTRANT

REACTIONS (1)
  - Bone marrow toxicity [Unknown]

NARRATIVE: CASE EVENT DATE: 2018
